FAERS Safety Report 11780297 (Version 1)
Quarter: 2015Q4

REPORT INFORMATION
  Report Type: Spontaneous
  Country: US (occurrence: US)
  Receive Date: 20151126
  Receipt Date: 20151126
  Transmission Date: 20160305
  Serious: No
  Sender: FDA-Public Use
  Company Number: US-JNJFOC-20151000448

PATIENT
  Age: 36 Month
  Sex: Female
  Weight: 11.34 kg

DRUGS (1)
  1. TYLENOL EXTRA STRENGTH [Suspect]
     Active Substance: ACETAMINOPHEN
     Indication: ACCIDENTAL EXPOSURE TO PRODUCT
     Dosage: 1/4TH OF TABLET
     Route: 048
     Dates: start: 20150930, end: 20150930

REACTIONS (2)
  - Expired product administered [Unknown]
  - Accidental exposure to product by child [Unknown]
